FAERS Safety Report 12398409 (Version 1)
Quarter: 2016Q2

REPORT INFORMATION
  Report Type: Spontaneous
  Country: BR (occurrence: BR)
  Receive Date: 20160524
  Receipt Date: 20160524
  Transmission Date: 20160815
  Serious: Yes (Other)
  Sender: FDA-Public Use
  Company Number: BR-ABBVIE-16P-020-1635117-00

PATIENT
  Sex: Female

DRUGS (9)
  1. VENLAFAXINE [Suspect]
     Active Substance: VENLAFAXINE HYDROCHLORIDE
     Dosage: DOSE: 75 MG
     Route: 065
  2. CLONAZEPAN [Suspect]
     Active Substance: CLONAZEPAM
     Dosage: 8 DROPS
     Route: 065
  3. FLUOXETINE [Concomitant]
     Active Substance: FLUOXETINE HYDROCHLORIDE
     Indication: PRODUCT USED FOR UNKNOWN INDICATION
  4. VENLAFAXINE [Suspect]
     Active Substance: VENLAFAXINE HYDROCHLORIDE
     Indication: PRODUCT USED FOR UNKNOWN INDICATION
     Dosage: AT NIGHT; DAILY DOSE:37.5 MG
     Route: 065
  5. CLONAZEPAN [Suspect]
     Active Substance: CLONAZEPAM
     Dosage: 4 DROPS
     Route: 065
  6. DEPAKOTE [Suspect]
     Active Substance: DIVALPROEX SODIUM
     Indication: PRODUCT USED FOR UNKNOWN INDICATION
     Dosage: ONCE A DAY, 1 TAB IN THE MORNING; DAILY DOSE: 250MG
     Route: 065
  7. CLONAZEPAN [Suspect]
     Active Substance: CLONAZEPAM
     Dosage: 10 DROPS
     Route: 065
  8. CLONAZEPAN [Suspect]
     Active Substance: CLONAZEPAM
     Dosage: DAY BEFORE POST; 10 DROPS
     Route: 065
  9. CLONAZEPAN [Suspect]
     Active Substance: CLONAZEPAM
     Indication: INSOMNIA
     Dosage: DAILY DOSE: 6 DROPS; ONCE A DAY, AT 09: 00PM
     Route: 065

REACTIONS (4)
  - Bipolar disorder [Unknown]
  - Insomnia [Unknown]
  - Abortion spontaneous [Unknown]
  - Maternal exposure during pregnancy [Unknown]
